FAERS Safety Report 23618872 (Version 1)
Quarter: 2024Q1

REPORT INFORMATION
  Report Type: Spontaneous
  Country: PT (occurrence: PT)
  Receive Date: 20240311
  Receipt Date: 20240311
  Transmission Date: 20240410
  Serious: Yes (Life-Threatening)
  Sender: FDA-Public Use
  Company Number: PT-002147023-NVSC2024PT050525

PATIENT
  Age: 59 Year
  Sex: Male

DRUGS (1)
  1. DABRAFENIB [Suspect]
     Active Substance: DABRAFENIB
     Indication: Malignant melanoma
     Dosage: UNK
     Route: 065

REACTIONS (1)
  - Haemophagocytic lymphohistiocytosis [Recovered/Resolved]
